FAERS Safety Report 17929201 (Version 1)
Quarter: 2020Q2

REPORT INFORMATION
  Report Type: Spontaneous
  Country: US (occurrence: US)
  Receive Date: 20200623
  Receipt Date: 20200623
  Transmission Date: 20200714
  Serious: No
  Sender: FDA-Public Use
  Company Number: US-GALDERMA-US2020023986

PATIENT
  Age: 20 Year
  Sex: Female

DRUGS (3)
  1. DIFFERIN GEL [Suspect]
     Active Substance: ADAPALENE
     Indication: ACNE
     Dosage: 0.1%
     Route: 061
     Dates: start: 202004
  2. NEUTROGENA SENSTIVE SKIN OIL FREE MOISTURIZER [Concomitant]
     Indication: DRY SKIN PROPHYLAXIS
  3. NEUTROGENA SALICYLIC ACID FACE WASH [Concomitant]
     Indication: THERAPEUTIC SKIN CARE TOPICAL

REACTIONS (6)
  - Erythema [Recovered/Resolved]
  - Skin irritation [Recovered/Resolved]
  - Dry skin [Not Recovered/Not Resolved]
  - Skin burning sensation [Recovered/Resolved]
  - Skin hyperpigmentation [Not Recovered/Not Resolved]
  - Skin exfoliation [Not Recovered/Not Resolved]

NARRATIVE: CASE EVENT DATE: 202004
